FAERS Safety Report 7496766-7 (Version None)
Quarter: 2011Q2

REPORT INFORMATION
  Report Type: 
  Country: None (occurrence: None)
  Receive Date: 20110523
  Receipt Date: 20110513
  Transmission Date: 20111010
  Serious: Yes (Hospitalization)
  Sender: FDA-Public Use
  Company Number: B0718735A

PATIENT
  Sex: Male

DRUGS (6)
  1. ESBERIVEN FORT [Concomitant]
     Dosage: 1UNIT PER DAY
  2. ACETAMINOPHEN [Concomitant]
  3. AVANDAMET [Suspect]
     Route: 048
     Dates: start: 20030501, end: 20101117
  4. INDAPAMIDE [Concomitant]
     Dosage: 2.5MG PER DAY
     Dates: start: 20090201
  5. SPIRIVA [Concomitant]
     Dosage: 1UNIT PER DAY
  6. GAVISCON [Concomitant]

REACTIONS (3)
  - HAEMATURIA [None]
  - TRANSITIONAL CELL CARCINOMA [None]
  - URINARY BLADDER POLYP [None]
